FAERS Safety Report 23491818 (Version 1)
Quarter: 2024Q1

REPORT INFORMATION
  Report Type: Report from Study
  Country: US (occurrence: US)
  Receive Date: 20240207
  Receipt Date: 20240207
  Transmission Date: 20240410
  Serious: No
  Sender: FDA-Public Use
  Company Number: US-ORG100014127-2023000756

PATIENT
  Age: 70 Year
  Sex: Female

DRUGS (6)
  1. LYSODREN [Suspect]
     Active Substance: MITOTANE
     Indication: Adrenal gland cancer
     Dosage: TAKE 2 TABLETS BY MOUTH THREE TIMES DAILY
     Route: 048
     Dates: start: 20230524
  2. AMLODIPINE [Concomitant]
     Active Substance: AMLODIPINE BESYLATE
     Indication: Product used for unknown indication
  3. EZETIMIBE [Concomitant]
     Active Substance: EZETIMIBE
     Indication: Product used for unknown indication
  4. ONDANSETRON [Concomitant]
     Active Substance: ONDANSETRON
     Indication: Product used for unknown indication
  5. Tylenol tab 500mg [Concomitant]
     Indication: Product used for unknown indication
  6. Vitamin D3 cap 5000unit [Concomitant]
     Indication: Product used for unknown indication

REACTIONS (3)
  - Abdominal distension [Unknown]
  - Weight increased [Unknown]
  - Abdominal discomfort [Unknown]

NARRATIVE: CASE EVENT DATE: 20230101
